FAERS Safety Report 6966141 (Version 1)
Quarter: 2020Q3

REPORT INFORMATION
  Report Type: Report from Study
  Country: US (occurrence: US)
  Receive Date: 20090410
  Receipt Date: 20090410
  Transmission Date: 20201104
  Serious: Yes (Other)
  Sender: FDA-Public Use
  Company Number: US-ROCHE-625284

PATIENT
  Age: 50 Year
  Sex: Female

DRUGS (1)
  1. IBANDRONIC ACID. [Suspect]
     Active Substance: IBANDRONIC ACID
     Indication: PRODUCT USED FOR UNKNOWN INDICATION
     Route: 065
     Dates: start: 200708

REACTIONS (8)
  - Mitral valve disease [Unknown]
  - Fall [None]
  - Paraesthesia [Unknown]
  - Lumbar vertebral fracture [Unknown]
  - Myalgia [Unknown]
  - Viral infection [Unknown]
  - Neurological symptom [Unknown]
  - Arthralgia [Unknown]

NARRATIVE: CASE EVENT DATE: 20080801
